FAERS Safety Report 8799082 (Version 1)
Quarter: 2012Q4

REPORT INFORMATION
  Report Type: 
  Country: US (occurrence: US)
  Receive Date: 20120920
  Receipt Date: 20120920
  Transmission Date: 20130627
  Serious: No
  Sender: FDA-Public Use
  Company Number: US-ASTRAZENECA-2011SE61923

PATIENT
  Age: 58 Year
  Sex: Female

DRUGS (1)
  1. LISINOPRIL [Suspect]
     Route: 048

REACTIONS (4)
  - Weight decreased [Recovered/Resolved]
  - Insomnia [Recovered/Resolved]
  - Aphagia [Recovered/Resolved]
  - Cough [Recovered/Resolved]
